FAERS Safety Report 4540806-1 (Version None)
Quarter: 2004Q4

REPORT INFORMATION
  Report Type: 
  Country: None (occurrence: None)
  Receive Date: 20041229
  Receipt Date: 20040726
  Transmission Date: 20050328
  Serious: Yes (Other)
  Sender: FDA-Public Use
  Company Number: GB-MERCK-0407GBR00266

PATIENT
  Age: 59 Year
  Sex: Female
  Weight: 74 kg

DRUGS (6)
  1. FOSAMAX [Suspect]
     Indication: OSTEOPENIA
     Route: 048
     Dates: start: 20031101, end: 20040401
  2. CHOLECALCIFEROL [Concomitant]
     Route: 065
  3. LEVOTHYROXINE SODIUM [Concomitant]
     Indication: THYROIDECTOMY PARTIAL
     Route: 065
  4. GLUCOSAMINE [Concomitant]
     Route: 065
  5. EVENING PRIMROSE OIL [Concomitant]
     Route: 065
  6. COD LIVER OIL [Concomitant]
     Route: 065

REACTIONS (5)
  - PHOTOPSIA [None]
  - VISUAL ACUITY REDUCED [None]
  - VISUAL DISTURBANCE [None]
  - VITREOUS DETACHMENT [None]
  - VITREOUS FLOATERS [None]
